FAERS Safety Report 10448494 (Version 2)
Quarter: 2014Q3

REPORT INFORMATION
  Report Type: Report from Study
  Country: US (occurrence: US)
  Receive Date: 20140911
  Receipt Date: 20140922
  Transmission Date: 20150326
  Serious: Yes (Hospitalization)
  Sender: FDA-Public Use
  Company Number: PHHO2014US012186

PATIENT
  Age: 48 Year
  Sex: Male
  Weight: 86 kg

DRUGS (1)
  1. ZYKADIA [Suspect]
     Active Substance: CERITINIB
     Indication: NON-SMALL CELL LUNG CANCER
     Dosage: 750 MG, QD
     Route: 048
     Dates: start: 20130801

REACTIONS (6)
  - Dehydration [Recovering/Resolving]
  - Vomiting [Unknown]
  - Nausea [Unknown]
  - Pain [Recovering/Resolving]
  - Metastases to central nervous system [Unknown]
  - Device related infection [Recovering/Resolving]

NARRATIVE: CASE EVENT DATE: 20140905
